FAERS Safety Report 6704482-1 (Version None)
Quarter: 2010Q2

REPORT INFORMATION
  Report Type: 
  Country: None (occurrence: None)
  Receive Date: 20100430
  Receipt Date: 20100422
  Transmission Date: 20101027
  Serious: Yes (Other)
  Sender: FDA-Public Use
  Company Number: GXKR2008US10619

PATIENT
  Age: 71 Year
  Sex: Male

DRUGS (3)
  1. METOCLOPRAMIDE (NGX) [Suspect]
     Indication: CONSTIPATION
     Dosage: 10 MG, TID
     Route: 065
     Dates: start: 20070501, end: 20070522
  2. CARBIDOPA AND LEVODOPA [Concomitant]
     Indication: PARKINSON'S DISEASE
  3. TRIHEXYPHENIDYL HCL [Concomitant]
     Indication: PARKINSON'S DISEASE
     Dosage: UNK
     Route: 065

REACTIONS (9)
  - AGGRESSION [None]
  - AGITATION [None]
  - COGNITIVE DISORDER [None]
  - ENCEPHALOPATHY [None]
  - HALLUCINATION, VISUAL [None]
  - MOTOR DYSFUNCTION [None]
  - PARKINSONISM [None]
  - PERSONALITY CHANGE [None]
  - TREMOR [None]
